FAERS Safety Report 4288662-3 (Version None)
Quarter: 2004Q1

REPORT INFORMATION
  Report Type: 
  Country: None (occurrence: None)
  Receive Date: 20040209
  Receipt Date: 20040123
  Transmission Date: 20041129
  Serious: Yes (Disabling)
  Sender: FDA-Public Use
  Company Number: WAES 0401USA01826

PATIENT
  Age: 38 Year
  Sex: Female

DRUGS (8)
  1. FOSAMAX [Suspect]
     Route: 048
     Dates: start: 20030101
  2. CALCIUM (UNSPECIFIED) [Concomitant]
  3. GLUCOSAMINE [Concomitant]
  4. SKELAXIN [Concomitant]
  5. MEDROL [Concomitant]
  6. OXYCONTIN [Concomitant]
  7. BEXTRA [Concomitant]
  8. VITAMIN D (UNSPECIFIED) [Concomitant]

REACTIONS (5)
  - ARTHROPATHY [None]
  - BACK PAIN [None]
  - BONE PAIN [None]
  - HIP ARTHROPLASTY [None]
  - KNEE ARTHROPLASTY [None]
